FAERS Safety Report 8098390-4 (Version None)
Quarter: 2012Q1

REPORT INFORMATION
  Report Type: 
  Country: None (occurrence: None)
  Receive Date: 20120131
  Receipt Date: 20120130
  Transmission Date: 20120608
  Serious: Yes (Death, Hospitalization)
  Sender: FDA-Public Use
  Company Number: IT-JNJFOC-20120112648

PATIENT
  Sex: Male
  Weight: 80 kg

DRUGS (6)
  1. ABIRATERONE ACETATE [Suspect]
     Indication: PROSTATE CANCER METASTATIC
     Route: 048
     Dates: start: 20110618, end: 20120106
  2. DIBASE [Concomitant]
     Indication: METASTASES TO BONE
     Route: 048
     Dates: start: 20120101, end: 20120101
  3. ABIRATERONE ACETATE [Suspect]
     Route: 048
  4. DELACORTENE [Suspect]
     Indication: PROSTATE CANCER METASTATIC
     Route: 048
     Dates: start: 20090203, end: 20120101
  5. FENTANYL-100 [Concomitant]
     Indication: BONE PAIN
     Route: 065
     Dates: start: 20120101, end: 20120109
  6. OMEPRAZOLE [Concomitant]
     Indication: GASTROINTESTINAL DISORDER THERAPY
     Route: 048
     Dates: start: 20120101, end: 20120109

REACTIONS (7)
  - HYPONATRAEMIA [None]
  - RESPIRATORY FAILURE [None]
  - TACHYCARDIA [None]
  - SOMNOLENCE [None]
  - SEPSIS [None]
  - HYPOTENSION [None]
  - ABDOMINAL PAIN [None]
